FAERS Safety Report 18354543 (Version 1)
Quarter: 2020Q4

REPORT INFORMATION
  Report Type: Spontaneous
  Country: US (occurrence: US)
  Receive Date: 20201006
  Receipt Date: 20201006
  Transmission Date: 20210114
  Serious: Yes (Disabling, Other)
  Sender: FDA-Public Use
  Company Number: None

PATIENT
  Age: 30 Year
  Sex: Female
  Weight: 86.18 kg

DRUGS (1)
  1. SKYLA [Suspect]
     Active Substance: LEVONORGESTREL
     Dates: start: 20190621, end: 20200917

REACTIONS (17)
  - Gait inability [None]
  - Therapy interrupted [None]
  - Anger [None]
  - Complication associated with device [None]
  - Sciatica [None]
  - Muscle spasms [None]
  - Lymphadenopathy [None]
  - Cough [None]
  - Back pain [None]
  - Suicidal ideation [None]
  - Alopecia [None]
  - Emotional disorder [None]
  - Anxiety [None]
  - Depression [None]
  - Nerve injury [None]
  - Arthralgia [None]
  - Weight increased [None]

NARRATIVE: CASE EVENT DATE: 20191209
